FAERS Safety Report 12571972 (Version 5)
Quarter: 2017Q1

REPORT INFORMATION
  Report Type: Spontaneous
  Country: US (occurrence: US)
  Receive Date: 20160719
  Receipt Date: 20170111
  Transmission Date: 20170428
  Serious: No
  Sender: FDA-Public Use
  Company Number: US-ALKERMES INC.-ALK-2016-001695

PATIENT
  Age: 24 Year
  Sex: Female
  Weight: 91.61 kg

DRUGS (4)
  1. IRON [Concomitant]
     Active Substance: IRON
     Indication: PRODUCT USED FOR UNKNOWN INDICATION
     Dosage: UNK
     Route: 065
  2. WELLBUTRIN [Concomitant]
     Active Substance: BUPROPION HYDROCHLORIDE
     Indication: DISTURBANCE IN ATTENTION
     Dosage: UNK
     Route: 065
  3. BENADRYL [Concomitant]
     Active Substance: DIPHENHYDRAMINE HYDROCHLORIDE
     Indication: MUSCLE SPASMS
     Dosage: 50 MG, PRN
     Route: 065
  4. ARISTADA [Suspect]
     Active Substance: ARIPIPRAZOLE LAUROXIL
     Indication: SCHIZOPHRENIA
     Dosage: 662 MG, QMO
     Route: 030
     Dates: start: 201606

REACTIONS (10)
  - Muscle spasms [Unknown]
  - Back pain [Unknown]
  - Weight increased [Not Recovered/Not Resolved]
  - Blood iron decreased [Unknown]
  - Pain [Unknown]
  - Underdose [Not Recovered/Not Resolved]
  - Injection site mass [Not Recovered/Not Resolved]
  - Anaemia [Unknown]
  - Drug administered at inappropriate site [Unknown]
  - Injection site induration [Not Recovered/Not Resolved]

NARRATIVE: CASE EVENT DATE: 20160529
